FAERS Safety Report 15562518 (Version 10)
Quarter: 2020Q1

REPORT INFORMATION
  Report Type: Spontaneous
  Country: JP (occurrence: JP)
  Receive Date: 20181029
  Receipt Date: 20200221
  Transmission Date: 20200409
  Serious: Yes (Other)
  Sender: FDA-Public Use
  Company Number: JP-SEATTLE GENETICS-2018SGN02734

PATIENT
  Age: 61 Year
  Sex: Male
  Weight: 62.5 kg

DRUGS (3)
  1. ADCETRIS [Suspect]
     Active Substance: BRENTUXIMAB VEDOTIN
     Indication: ANAPLASTIC LARGE-CELL LYMPHOMA
     Dosage: 100 MILLIGRAM, Q3WEEKS
     Route: 041
     Dates: start: 20180820, end: 20190226
  2. LACTOMIN                          /01617201/ [Concomitant]
     Indication: PROPHYLAXIS
     Dosage: 1 G, TID
     Route: 048
     Dates: start: 20180601
  3. ADCETRIS [Suspect]
     Active Substance: BRENTUXIMAB VEDOTIN
     Dosage: 1.8 MILLIGRAM/KILOGRAM
     Route: 042
     Dates: start: 20200210

REACTIONS (6)
  - Blood lactate dehydrogenase increased [Unknown]
  - Faeces discoloured [Recovered/Resolved]
  - Neuropathy peripheral [Not Recovered/Not Resolved]
  - Cardiac failure [Recovering/Resolving]
  - Tumour haemorrhage [Recovering/Resolving]
  - Blood loss anaemia [Recovering/Resolving]

NARRATIVE: CASE EVENT DATE: 20180901
